FAERS Safety Report 8390167-5 (Version None)
Quarter: 2012Q2

REPORT INFORMATION
  Report Type: 
  Country: None (occurrence: None)
  Receive Date: 20120529
  Receipt Date: 20120522
  Transmission Date: 20120825
  Serious: Yes (Hospitalization, Other)
  Sender: FDA-Public Use
  Company Number: FR-PFIZER INC-2012126939

PATIENT
  Age: 89 Year
  Sex: Female

DRUGS (7)
  1. LERCANIDIPINE [Concomitant]
     Dosage: 10/DAY
  2. LASIX [Concomitant]
     Dosage: 20 NOS/DAY
  3. ATENOLOL [Concomitant]
     Dosage: 50 NOS/DAY
  4. PRADAXA [Interacting]
     Indication: ATRIAL FIBRILLATION
     Dosage: 1 DF, 2X/DAY
     Route: 048
     Dates: start: 20120201, end: 20120414
  5. FENOFIBRATE [Concomitant]
     Dosage: 145 NOS/DAY
  6. POTASSIUM CHLORIDE [Concomitant]
     Dosage: 1 DF/DAY
  7. CORDARONE [Suspect]
     Indication: ATRIAL FLUTTER
     Dosage: 200 NOS/DAY  5DAYS/7
     Route: 048

REACTIONS (14)
  - RECTAL HAEMORRHAGE [None]
  - CONDITION AGGRAVATED [None]
  - BLOOD PRESSURE DIASTOLIC DECREASED [None]
  - DIVERTICULITIS INTESTINAL HAEMORRHAGIC [None]
  - OVERDOSE [None]
  - RENAL FAILURE [None]
  - BODY TEMPERATURE DECREASED [None]
  - COAGULOPATHY [None]
  - HAEMORRHAGIC ANAEMIA [None]
  - TROPONIN INCREASED [None]
  - MELAENA [None]
  - HEART RATE DECREASED [None]
  - DRUG INTERACTION [None]
  - OXYGEN SATURATION DECREASED [None]
